FAERS Safety Report 8345150-2 (Version None)
Quarter: 2012Q2

REPORT INFORMATION
  Report Type: 
  Country: None (occurrence: None)
  Receive Date: 20120508
  Receipt Date: 20120505
  Transmission Date: 20120825
  Serious: No
  Sender: FDA-Public Use
  Company Number: US-TEVA-336793USA

PATIENT
  Sex: Female
  Weight: 55.388 kg

DRUGS (1)
  1. PLAN B ONE-STEP [Suspect]
     Indication: POST COITAL CONTRACEPTION
     Dosage: 1.5 MILLIGRAM;
     Route: 048
     Dates: start: 20120502, end: 20120502

REACTIONS (15)
  - VULVOVAGINAL PRURITUS [None]
  - COUGH [None]
  - FATIGUE [None]
  - SYNCOPE [None]
  - BACK PAIN [None]
  - HYPERHIDROSIS [None]
  - CERVIX INFLAMMATION [None]
  - DIZZINESS [None]
  - FEELING COLD [None]
  - VULVOVAGINAL BURNING SENSATION [None]
  - ABDOMINAL PAIN LOWER [None]
  - HEADACHE [None]
  - VAGINAL DISCHARGE [None]
  - COLD SWEAT [None]
  - NAUSEA [None]
